FAERS Safety Report 6377567-X (Version None)
Quarter: 2009Q3

REPORT INFORMATION
  Report Type: 
  Country: None (occurrence: None)
  Receive Date: 20090925
  Receipt Date: 20090915
  Transmission Date: 20100115
  Serious: Yes (Hospitalization)
  Sender: FDA-Public Use
  Company Number: ES-ELI_LILLY_AND_COMPANY-ES200909003844

PATIENT
  Age: 65 Year
  Sex: Female

DRUGS (8)
  1. FORTEO [Suspect]
     Indication: OSTEOPOROSIS
     Dosage: 20 MG, UNKNOWN
     Route: 058
     Dates: start: 20090101
  2. CORTISONE [Concomitant]
     Indication: ENTERITIS
     Dosage: UNK, UNKNOWN
     Route: 065
  3. SINGULAIR [Concomitant]
     Indication: ENTERITIS
     Dosage: UNK, UNKNOWN
     Route: 065
  4. PENTASA [Concomitant]
     Indication: ENTERITIS
     Dosage: UNK, UNKNOWN
     Route: 065
  5. IBUPROFEN [Concomitant]
     Indication: ENTERITIS
     Dosage: UNK, UNKNOWN
     Route: 065
  6. NOLOTIL [Concomitant]
     Indication: ENTERITIS
     Dosage: UNK, UNKNOWN
     Route: 065
  7. DURAGESIC-100 [Concomitant]
     Indication: ENTERITIS
     Dosage: UNK, UNKNOWN
     Route: 065
  8. MODULON [Concomitant]
     Indication: ENTERITIS
     Dosage: UNK, UNKNOWN
     Route: 065

REACTIONS (1)
  - ENTERITIS [None]
